FAERS Safety Report 7811250-6 (Version None)
Quarter: 2011Q4

REPORT INFORMATION
  Report Type: 
  Country: None (occurrence: None)
  Receive Date: 20111011
  Receipt Date: 20110926
  Transmission Date: 20120403
  Serious: Yes (Death)
  Sender: FDA-Public Use
  Company Number: 2011-414

PATIENT
  Age: 76 Year
  Sex: Male

DRUGS (10)
  1. FUROSEMIDE [Concomitant]
  2. DILANTIN [Concomitant]
  3. PHENOBARBITAL TAB [Concomitant]
  4. FAZACLO ODT [Suspect]
     Dosage: 500 MG, QD, ORAL 100 MG, QD, ORAL
     Route: 048
     Dates: start: 20110912
  5. FAZACLO ODT [Suspect]
     Dosage: 500 MG, QD, ORAL 100 MG, QD, ORAL
     Route: 048
     Dates: start: 20100329, end: 20110912
  6. PANTOPRAZOLE [Concomitant]
  7. CIPROFLOXACIN HYDROCHLORIDE [Concomitant]
  8. SULFAMETHOXAZOLE AND TIMETHOPRIM (SULFAMETHOXAZOLE, TRIMETHOPRIM) [Concomitant]
  9. AMOXICILLIN [Concomitant]
  10. ALENDRONATE SODIUM [Concomitant]

REACTIONS (1)
  - DEATH [None]
